FAERS Safety Report 16283129 (Version 1)
Quarter: 2019Q2

REPORT INFORMATION
  Report Type: Spontaneous
  Country: US (occurrence: US)
  Receive Date: 20190507
  Receipt Date: 20190507
  Transmission Date: 20190711
  Serious: No
  Sender: FDA-Public Use
  Company Number: US-PFIZER INC-2019190202

PATIENT
  Age: 61 Year
  Sex: Male

DRUGS (1)
  1. EUCRISA [Suspect]
     Active Substance: CRISABOROLE
     Indication: ERYTHRASMA
     Dosage: UNK, AS NEEDED [APPLY ONCE DAILY]

REACTIONS (3)
  - Drug ineffective for unapproved indication [Unknown]
  - Erythrasma [Unknown]
  - Condition aggravated [Unknown]
